FAERS Safety Report 4826336-8 (Version None)
Quarter: 2005Q4

REPORT INFORMATION
  Report Type: 
  Country: None (occurrence: None)
  Receive Date: 20051111
  Receipt Date: 20050908
  Transmission Date: 20060501
  Serious: Yes (Other)
  Sender: FDA-Public Use
  Company Number: BR-ROCHE-417311

PATIENT
  Age: 33 Year
  Sex: Female
  Weight: 60 kg

DRUGS (2)
  1. ROACUTAN [Suspect]
     Indication: ACNE
     Dosage: 20MG AND 40MG ADMINISTERED ON ALTERNATING DAYS
     Route: 048
     Dates: start: 20050304
  2. MIRELLE [Suspect]
     Indication: CONTRACEPTION
     Route: 048

REACTIONS (3)
  - BREAST DYSPLASIA [None]
  - CHAPPED LIPS [None]
  - DRY EYE [None]
